FAERS Safety Report 6875035-X (Version None)
Quarter: 2010Q2

REPORT INFORMATION
  Report Type: 
  Country: None (occurrence: None)
  Receive Date: 20100616
  Receipt Date: 20080131
  Transmission Date: 20101027
  Serious: Yes (Hospitalization)
  Sender: FDA-Public Use
  Company Number: S07-USA-03833-01

PATIENT
  Age: 80 Year
  Sex: Female

DRUGS (9)
  1. NAMENDA [Suspect]
     Indication: DEMENTIA
     Dosage: ORAL ; 5 MG (5 MG,ONCE A DAY),ORAL
     Route: 048
     Dates: start: 20070902, end: 20070902
  2. NAMENDA [Suspect]
     Indication: DEMENTIA
     Dosage: ORAL ; 5 MG (5 MG,ONCE A DAY),ORAL
     Route: 048
     Dates: start: 20070901
  3. NAMENDA [Suspect]
     Indication: DEMENTIA
     Dosage: SEE IMAGE
     Route: 048
     Dates: start: 20070807, end: 20070813
  4. NAMENDA [Suspect]
     Indication: DEMENTIA
     Dosage: SEE IMAGE
     Route: 048
     Dates: start: 20070814, end: 20070820
  5. NAMENDA [Suspect]
     Indication: DEMENTIA
     Dosage: SEE IMAGE
     Route: 048
     Dates: start: 20070821, end: 20070827
  6. NAMENDA [Suspect]
     Indication: DEMENTIA
     Dosage: SEE IMAGE
     Route: 048
     Dates: start: 20070828, end: 20070901
  7. ARICEPT [Suspect]
     Indication: DEMENTIA
     Dosage: 10 MG (10 MG,ONCE) ; ORAL
     Dates: start: 20070902, end: 20070902
  8. ARICEPT [Suspect]
     Indication: DEMENTIA
     Dosage: 10 MG (10 MG,ONCE) ; ORAL
     Dates: start: 20070828
  9. ATENOLOL [Concomitant]

REACTIONS (2)
  - ACCIDENTAL OVERDOSE [None]
  - SOMNOLENCE [None]
